FAERS Safety Report 10518629 (Version 1)
Quarter: 2014Q4

REPORT INFORMATION
  Report Type: Spontaneous
  Country: NL (occurrence: NL)
  Receive Date: 20141015
  Receipt Date: 20141015
  Transmission Date: 20150528
  Serious: Yes (Hospitalization)
  Sender: FDA-Public Use
  Company Number: NL-LEO PHARMA-226277

PATIENT
  Age: 51 Year
  Sex: Female

DRUGS (2)
  1. PICATO [Suspect]
     Active Substance: INGENOL MEBUTATE
     Indication: PRODUCT USED FOR UNKNOWN INDICATION
     Dates: start: 20140124, end: 20140126
  2. NEOTIGASON [Concomitant]
     Active Substance: ACITRETIN
     Indication: AUTOIMMUNE HEPATITIS

REACTIONS (1)
  - Liver function test abnormal [Unknown]
